FAERS Safety Report 13455885 (Version 11)
Quarter: 2018Q2

REPORT INFORMATION
  Report Type: Report from Study
  Country: US (occurrence: US)
  Receive Date: 20170418
  Receipt Date: 20180628
  Transmission Date: 20180711
  Serious: Yes (Death, Hospitalization, Disabling, Other)
  Sender: FDA-Public Use
  Company Number: PHHY2017US054960

PATIENT
  Age: 7 Year
  Sex: Male
  Weight: 26.9 kg

DRUGS (11)
  1. ILARIS [Suspect]
     Active Substance: CANAKINUMAB
     Indication: JUVENILE IDIOPATHIC ARTHRITIS
     Dosage: 100 MG, QD
     Route: 065
     Dates: start: 20160509, end: 20160916
  2. METHOTREXATE. [Suspect]
     Active Substance: METHOTREXATE
     Indication: STILL^S DISEASE
     Dosage: 12.5 MG, QD
     Route: 065
     Dates: start: 20160309, end: 20160525
  3. KINERET [Suspect]
     Active Substance: ANAKINRA
     Indication: JUVENILE IDIOPATHIC ARTHRITIS
     Dosage: 45 MG, QD
     Route: 065
     Dates: start: 20160323, end: 20160508
  4. ACTEMRA [Suspect]
     Active Substance: TOCILIZUMAB
     Indication: IMMUNOMODULATORY THERAPY
     Dosage: 340 MG, QD
     Route: 065
     Dates: start: 20170127, end: 20170317
  5. KINERET [Suspect]
     Active Substance: ANAKINRA
     Indication: IMMUNOMODULATORY THERAPY
     Dosage: UNK
     Route: 065
     Dates: end: 20170316
  6. PREDNISOLONE. [Concomitant]
     Active Substance: PREDNISOLONE
     Indication: STILL^S DISEASE
     Dosage: 3 MG, QD
     Route: 065
     Dates: start: 20160822
  7. KINERET [Suspect]
     Active Substance: ANAKINRA
     Dosage: 60 MG, UNK
     Route: 065
     Dates: start: 20170317, end: 20170322
  8. METHOTREXATE. [Suspect]
     Active Substance: METHOTREXATE
     Indication: IMMUNOMODULATORY THERAPY
     Dosage: 100 MG, UNK
     Route: 065
     Dates: start: 20160509, end: 20160916
  9. METHOTREXATE. [Suspect]
     Active Substance: METHOTREXATE
     Indication: JUVENILE IDIOPATHIC ARTHRITIS
     Dosage: 7.5 MG, QD
     Route: 065
     Dates: start: 20160525, end: 20161223
  10. ACTEMRA [Suspect]
     Active Substance: TOCILIZUMAB
     Indication: JUVENILE IDIOPATHIC ARTHRITIS
     Dosage: 340 MG, QD
     Route: 065
     Dates: start: 20160916, end: 20161223
  11. KINERET [Suspect]
     Active Substance: ANAKINRA
     Dosage: 100 MG, UNK
     Route: 065
     Dates: start: 20170322

REACTIONS (13)
  - Corona virus infection [Not Recovered/Not Resolved]
  - Lymph node pain [Fatal]
  - Pyrexia [Fatal]
  - Tachypnoea [Fatal]
  - Hypoxia [Fatal]
  - Pneumonia viral [Recovered/Resolved]
  - Histiocytosis haematophagic [Fatal]
  - Respiratory distress [Not Recovered/Not Resolved]
  - Pneumonia adenoviral [Recovered/Resolved]
  - Juvenile idiopathic arthritis [Unknown]
  - Infection [Recovered/Resolved]
  - Lymphadenopathy [Fatal]
  - Cough [Not Recovered/Not Resolved]

NARRATIVE: CASE EVENT DATE: 20170106
